FAERS Safety Report 16124976 (Version 2)
Quarter: 2020Q3

REPORT INFORMATION
  Report Type: Spontaneous
  Country: DE (occurrence: DE)
  Receive Date: 20190327
  Receipt Date: 20200715
  Transmission Date: 20201102
  Serious: Yes (Hospitalization)
  Sender: FDA-Public Use
  Company Number: DE-BAUSCH-BL-2019-008851

PATIENT
  Age: 73 Year
  Sex: Female

DRUGS (8)
  1. ENALAPRIL [Suspect]
     Active Substance: ENALAPRIL
     Indication: HYPERTENSION
     Route: 065
     Dates: start: 2012, end: 2012
  2. HYDROCHLOROTHIAZIDE. [Suspect]
     Active Substance: HYDROCHLOROTHIAZIDE
     Route: 065
     Dates: start: 2012, end: 2012
  3. HYPNOREX [Suspect]
     Active Substance: LITHIUM CARBONATE
     Indication: BIPOLAR DISORDER
     Dosage: MORE THAN 20 YEARS
     Route: 065
     Dates: end: 2012
  4. HYPNOREX [Suspect]
     Active Substance: LITHIUM CARBONATE
     Route: 065
     Dates: start: 2012, end: 2012
  5. ENALAPRIL [Suspect]
     Active Substance: ENALAPRIL
     Route: 065
     Dates: start: 2012, end: 2012
  6. HYDROCHLOROTHIAZIDE. [Suspect]
     Active Substance: HYDROCHLOROTHIAZIDE
     Indication: HYPERTENSION
     Route: 065
     Dates: start: 2012, end: 2012
  7. HYPNOREX [Suspect]
     Active Substance: LITHIUM CARBONATE
     Dosage: LOWER DOSE
     Route: 065
     Dates: start: 2012, end: 2012
  8. ENALAPRIL [Suspect]
     Active Substance: ENALAPRIL
     Route: 065
     Dates: start: 2013

REACTIONS (3)
  - Toxicity to various agents [Recovered/Resolved]
  - Drug interaction [Recovered/Resolved]
  - Accidental exposure to product [Unknown]

NARRATIVE: CASE EVENT DATE: 2012
